FAERS Safety Report 12717776 (Version 1)
Quarter: 2016Q3

REPORT INFORMATION
  Report Type: Spontaneous
  Country: US (occurrence: US)
  Receive Date: 20160906
  Receipt Date: 20160906
  Transmission Date: 20161109
  Serious: Yes (Other)
  Sender: FDA-Public Use
  Company Number: US-SA-2016SA162270

PATIENT
  Age: 55 Year
  Sex: Male

DRUGS (10)
  1. ZETIA [Concomitant]
     Active Substance: EZETIMIBE
  2. NAPROSYN [Concomitant]
     Active Substance: NAPROXEN
     Dosage: 500 MG
  3. TYLENOL [Concomitant]
     Active Substance: ACETAMINOPHEN
  4. PREDNISONE. [Concomitant]
     Active Substance: PREDNISONE
     Dosage: 10 MG
  5. PRALUENT [Suspect]
     Active Substance: ALIROCUMAB
     Route: 065
  6. ALIROCUMAB PREFILLED PEN [Concomitant]
     Active Substance: ALIROCUMAB
  7. FISH OIL [Concomitant]
     Active Substance: FISH OIL
  8. CODEINE [Concomitant]
     Active Substance: CODEINE
  9. RAMIPRIL. [Concomitant]
     Active Substance: RAMIPRIL
  10. ASPIRIN. [Concomitant]
     Active Substance: ASPIRIN
     Dosage: 81 MG

REACTIONS (5)
  - Asthenia [Recovered/Resolved]
  - Rash [Recovered/Resolved]
  - Cough [Unknown]
  - Fatigue [Recovered/Resolved]
  - Dermatomyositis [Recovered/Resolved]
